FAERS Safety Report 6298044-0 (Version None)
Quarter: 2009Q3

REPORT INFORMATION
  Report Type: 
  Country: None (occurrence: None)
  Receive Date: 20090804
  Receipt Date: 20090804
  Transmission Date: 20100115
  Serious: No
  Sender: FDA-Public Use
  Company Number: None

PATIENT
  Age: 47 Year
  Sex: Female
  Weight: 83.0083 kg

DRUGS (2)
  1. SINGULAIR [Suspect]
     Indication: ASTHMA
     Dosage: 10MG DAILY PO
     Route: 048
     Dates: start: 20070401, end: 20090802
  2. SINGULAIR [Suspect]
     Indication: SEASONAL ALLERGY
     Dosage: 10MG DAILY PO
     Route: 048
     Dates: start: 20070401, end: 20090802

REACTIONS (16)
  - ABNORMAL BEHAVIOUR [None]
  - ABNORMAL DREAMS [None]
  - AGGRESSION [None]
  - AGITATION [None]
  - ANXIETY [None]
  - DEPRESSION [None]
  - EAR DISORDER [None]
  - FLUID RETENTION [None]
  - HEADACHE [None]
  - INSOMNIA [None]
  - IRRITABILITY [None]
  - MOOD ALTERED [None]
  - OROPHARYNGEAL PAIN [None]
  - RESTLESSNESS [None]
  - SUICIDAL IDEATION [None]
  - WEIGHT INCREASED [None]
